FAERS Safety Report 9687873 (Version 1)
Quarter: 2013Q4

REPORT INFORMATION
  Report Type: Report from Study
  Country: US (occurrence: US)
  Receive Date: 20131114
  Receipt Date: 20131114
  Transmission Date: 20140711
  Serious: Yes (Hospitalization)
  Sender: FDA-Public Use
  Company Number: US-JNJFOC-20131103334

PATIENT
  Age: 55 Year
  Sex: Female

DRUGS (1)
  1. INVEGA SUSTENNA [Suspect]
     Indication: BIPOLAR I DISORDER
     Route: 030

REACTIONS (8)
  - Hospitalisation [Unknown]
  - Contusion [Unknown]
  - Mania [Unknown]
  - Haemorrhoids [Unknown]
  - Confusional state [Unknown]
  - Insomnia [Unknown]
  - Dermatitis diaper [Unknown]
  - Off label use [Unknown]
